FAERS Safety Report 4324893-1 (Version None)
Quarter: 2004Q1

REPORT INFORMATION
  Report Type: 
  Country: None (occurrence: None)
  Receive Date: 20040323
  Receipt Date: 20040129
  Transmission Date: 20041129
  Serious: Yes (Other)
  Sender: FDA-Public Use
  Company Number: M04-341-023

PATIENT
  Age: 53 Year
  Sex: Male

DRUGS (1)
  1. VELCADE [Suspect]
     Indication: MULTIPLE MYELOMA
     Dosage: 2.6 MG BIW; INTRAVENOUS BOLUS
     Route: 040
     Dates: start: 20031123, end: 20040112

REACTIONS (3)
  - CONSTIPATION [None]
  - DIARRHOEA [None]
  - HYPOTENSION [None]
